FAERS Safety Report 23027748 (Version 1)
Quarter: 2023Q4

REPORT INFORMATION
  Report Type: Spontaneous
  Country: US (occurrence: None)
  Receive Date: 20231004
  Receipt Date: 20231004
  Transmission Date: 20240110
  Serious: No
  Sender: FDA-Public Use
  Company Number: None

PATIENT
  Sex: Female

DRUGS (1)
  1. ENBREL [Suspect]
     Active Substance: ETANERCEPT
     Indication: Psoriasis
     Dosage: FREQUENCY : WEEKLY;?
     Route: 058
     Dates: start: 202109

REACTIONS (6)
  - Drug ineffective [None]
  - Cough [None]
  - Pulmonary mass [None]
  - Hepatic steatosis [None]
  - Pulmonary congestion [None]
  - Gastrooesophageal reflux disease [None]
